FAERS Safety Report 25209624 (Version 1)
Quarter: 2025Q2

REPORT INFORMATION
  Report Type: Spontaneous
  Country: CN (occurrence: CN)
  Receive Date: 20250417
  Receipt Date: 20250417
  Transmission Date: 20250716
  Serious: Yes (Other)
  Sender: ELI LILLY AND CO
  Company Number: CN-ELI_LILLY_AND_COMPANY-CN202504005138

PATIENT

DRUGS (1)
  1. DONANEMAB [Suspect]
     Active Substance: DONANEMAB
     Indication: Dementia Alzheimer^s type
     Route: 065

REACTIONS (4)
  - Intestinal obstruction [Unknown]
  - Intestinal perforation [Unknown]
  - Brain oedema [Unknown]
  - Cerebral haemorrhage [Unknown]
